FAERS Safety Report 21206873 (Version 1)
Quarter: 2022Q3

REPORT INFORMATION
  Report Type: Report from Study
  Country: DE (occurrence: DE)
  Receive Date: 20220812
  Receipt Date: 20220812
  Transmission Date: 20221027
  Serious: Yes (Other)
  Sender: FDA-Public Use
  Company Number: DE-MYLANLABS-2022M1083333

PATIENT
  Sex: Male

DRUGS (15)
  1. METHOTREXATE [Suspect]
     Active Substance: METHOTREXATE
     Indication: Rheumatoid arthritis
     Dosage: 10 MILLIGRAM
     Route: 065
     Dates: start: 20160502
  2. METHOTREXATE [Suspect]
     Active Substance: METHOTREXATE
     Dosage: 10 MILLIGRAM
     Route: 065
     Dates: start: 20160808
  3. METHOTREXATE [Suspect]
     Active Substance: METHOTREXATE
     Dosage: UNK
     Route: 065
     Dates: start: 20161208
  4. METHOTREXATE [Suspect]
     Active Substance: METHOTREXATE
     Dosage: 10 MILLIGRAM
     Route: 065
     Dates: start: 20170427
  5. METHOTREXATE [Suspect]
     Active Substance: METHOTREXATE
     Dosage: 10 MILLIGRAM
     Route: 065
     Dates: start: 20171221
  6. METHOTREXATE [Suspect]
     Active Substance: METHOTREXATE
     Dosage: 10 MILLIGRAM
     Route: 065
     Dates: start: 20180503
  7. METHOTREXATE [Suspect]
     Active Substance: METHOTREXATE
     Dosage: 10 MILLIGRAM
     Route: 065
     Dates: start: 20181105
  8. GOLD [Suspect]
     Active Substance: GOLD
     Indication: Rheumatoid arthritis
     Dosage: 50 MILLIGRAM
     Route: 065
     Dates: start: 20160502
  9. GOLD [Suspect]
     Active Substance: GOLD
     Dosage: 50 MILLIGRAM
     Route: 065
     Dates: start: 20160808
  10. GOLD [Suspect]
     Active Substance: GOLD
     Dosage: 50 MILLIGRAM
     Route: 065
     Dates: start: 20161208
  11. GOLD [Suspect]
     Active Substance: GOLD
     Dosage: 50 MILLIGRAM
     Route: 065
     Dates: start: 20170427
  12. GOLD [Suspect]
     Active Substance: GOLD
     Dosage: 50 MILLIGRAM
     Route: 065
     Dates: start: 20171221
  13. GOLD [Suspect]
     Active Substance: GOLD
     Dosage: 50 MILLIGRAM
     Route: 065
     Dates: start: 20180503
  14. GOLD [Suspect]
     Active Substance: GOLD
     Dosage: 50 MILLIGRAM
     Route: 065
     Dates: start: 20181105
  15. GOLD SODIUM THIOMALATE [Suspect]
     Active Substance: GOLD SODIUM THIOMALATE
     Indication: Rheumatoid arthritis
     Dosage: UNK
     Route: 065

REACTIONS (1)
  - Prostate cancer [Not Recovered/Not Resolved]

NARRATIVE: CASE EVENT DATE: 20181005
